FAERS Safety Report 26201297 (Version 1)
Quarter: 2025Q4

REPORT INFORMATION
  Report Type: Report from Study
  Country: US (occurrence: US)
  Receive Date: 20251226
  Receipt Date: 20251226
  Transmission Date: 20260117
  Serious: Yes (Other)
  Sender: ALEXION PHARMACEUTICALS
  Company Number: US-ASTRAZENECA-202512NAM021047US

PATIENT
  Age: 51 Year
  Sex: Female

DRUGS (1)
  1. STRENSIQ [Suspect]
     Active Substance: ASFOTASE ALFA
     Indication: Phosphorus metabolism disorder
     Dosage: 2 MILLIGRAM/KILOGRAM, TIW, AS DIRECTED, ROTATE INJECTION SITES

REACTIONS (3)
  - Impaired gastric emptying [Unknown]
  - Dehydration [Unknown]
  - Arthralgia [Unknown]
